FAERS Safety Report 13896629 (Version 1)
Quarter: 2017Q3

REPORT INFORMATION
  Report Type: Spontaneous
  Country: US (occurrence: US)
  Receive Date: 20170821
  Receipt Date: 20170821
  Transmission Date: 20171127
  Serious: Yes (Life-Threatening, Other)
  Sender: FDA-Public Use
  Company Number: None

PATIENT
  Age: 2 Year
  Sex: Male
  Weight: 11.6 kg

DRUGS (5)
  1. MAG CITRATE [Concomitant]
  2. GOLYTELY [Suspect]
     Active Substance: POLYETHYLENE GLYCOL 3350\POTASSIUM CHLORIDE\SODIUM BICARBONATE\SODIUM CHLORIDE\SODIUM SULFATE ANHYDROUS
     Indication: CONSTIPATION
     Dosage: INTRAVENOUS (NOT OTHERWISE SPECIFIED)
     Route: 042
     Dates: start: 20170819, end: 20170819
  3. SMARTY PANTS VITAMIN GUMMY [Concomitant]
  4. FLAX OIL [Concomitant]
  5. RAW GARDEN OF LIFE CHILDREN^S PROBIOTICS [Concomitant]

REACTIONS (9)
  - Swelling face [None]
  - Wheezing [None]
  - Pallor [None]
  - Eye swelling [None]
  - Hypopnoea [None]
  - Foaming at mouth [None]
  - Anaphylactic reaction [None]
  - Lip swelling [None]
  - Swollen tongue [None]

NARRATIVE: CASE EVENT DATE: 20170819
